FAERS Safety Report 15318576 (Version 1)
Quarter: 2018Q3

REPORT INFORMATION
  Report Type: Spontaneous
  Country: US (occurrence: US)
  Receive Date: 20180817
  Receipt Date: 20180817
  Transmission Date: 20181010
  Serious: Yes (Other)
  Sender: FDA-Public Use
  Company Number: None

PATIENT
  Age: 60 Year
  Sex: Female
  Weight: 60.75 kg

DRUGS (1)
  1. OXYCODONE / ACETAMINOPHEN 5 / 325 MG. (GENERIC FOR PERCOCET 5/325) [Suspect]
     Active Substance: ACETAMINOPHEN\OXYCODONE HYDROCHLORIDE
     Indication: PAIN
     Dosage: ?          QUANTITY:1 TABLET(S);?
     Route: 048
     Dates: start: 20180710, end: 20180817

REACTIONS (6)
  - Vomiting [None]
  - Nausea [None]
  - Dizziness [None]
  - Product substitution issue [None]
  - Malaise [None]
  - Inadequate analgesia [None]

NARRATIVE: CASE EVENT DATE: 20180710
